FAERS Safety Report 7598170-X (Version None)
Quarter: 2011Q3

REPORT INFORMATION
  Report Type: 
  Country: None (occurrence: None)
  Receive Date: 20110708
  Receipt Date: 20110630
  Transmission Date: 20111222
  Serious: Yes (Death)
  Sender: FDA-Public Use
  Company Number: US-CELGENEUS-163-21880-11064054

PATIENT
  Sex: Female

DRUGS (16)
  1. WARFARIN SODIUM [Concomitant]
     Route: 065
  2. HUMALOG [Concomitant]
     Route: 065
  3. DEXAMETHASONE [Concomitant]
     Route: 065
  4. LASIX [Concomitant]
     Route: 065
  5. HYDROCODONE BITARTRATE [Concomitant]
     Route: 065
  6. COREG [Concomitant]
     Route: 065
  7. ALBUTEROL SULFATE AUTOHALER [Concomitant]
     Route: 065
  8. PROMETHAZINE [Concomitant]
     Route: 065
  9. CYMBALTA [Concomitant]
     Route: 065
  10. AMIODARONE HCL [Concomitant]
     Route: 065
  11. SIMVASTATIN [Concomitant]
     Route: 065
  12. PROTONIX [Concomitant]
     Route: 065
  13. MIRALAX [Concomitant]
     Route: 065
  14. REVLIMID [Suspect]
     Indication: MULTIPLE MYELOMA
     Dosage: 10 MILLIGRAM
     Route: 048
     Dates: start: 20100303
  15. LANTUS [Concomitant]
     Route: 065
  16. GLIMEPIRIDE [Concomitant]
     Route: 065

REACTIONS (1)
  - DEATH [None]
